FAERS Safety Report 9467906 (Version 1)
Quarter: 2013Q3

REPORT INFORMATION
  Report Type: Spontaneous
  Country: JP (occurrence: JP)
  Receive Date: 20130821
  Receipt Date: 20130821
  Transmission Date: 20140515
  Serious: No
  Sender: FDA-Public Use
  Company Number: JP-B.I. PHARMACEUTICALS,INC./RIDGEFIELD-2013-BI-25846NB

PATIENT
  Age: 8 Decade
  Sex: Male

DRUGS (9)
  1. TRAJENTA [Suspect]
     Indication: DIABETES MELLITUS
     Dosage: 5 MG
     Dates: start: 20130801, end: 20130808
  2. CIRCANETTEN [Suspect]
     Dates: start: 20130805, end: 20130808
  3. EMPYNASE [Suspect]
     Dates: start: 20130805, end: 20130808
  4. CRESTOR [Concomitant]
  5. GLYCORAN [Concomitant]
  6. NOVOLIN 30R [Concomitant]
  7. TAMSULOSIN HYDROCHLORIDE [Concomitant]
  8. DUTASTERIDE [Concomitant]
  9. UBRETID [Concomitant]

REACTIONS (1)
  - Drug eruption [Unknown]
